FAERS Safety Report 25427268 (Version 1)
Quarter: 2025Q2

REPORT INFORMATION
  Report Type: Spontaneous
  Country: RO (occurrence: RO)
  Receive Date: 20250612
  Receipt Date: 20250612
  Transmission Date: 20250717
  Serious: Yes (Death, Hospitalization, Other)
  Sender: JOHNSON AND JOHNSON
  Company Number: RO-BAYER-2025A077304

PATIENT
  Age: 62 Year
  Sex: Male

DRUGS (4)
  1. XARELTO [Suspect]
     Active Substance: RIVAROXABAN
     Indication: Deep vein thrombosis
     Dosage: 10 MG, BID
  2. ASPIRIN [Suspect]
     Active Substance: ASPIRIN
     Indication: Product used for unknown indication
     Dosage: 75 MG, QD
  3. ENOXAPARIN [Concomitant]
     Active Substance: ENOXAPARIN
     Indication: Product used for unknown indication
     Dosage: UNK UNK, BID
  4. APIXABAN [Concomitant]
     Active Substance: APIXABAN
     Indication: Product used for unknown indication
     Dosage: 5 MG, BID

REACTIONS (16)
  - Death [Fatal]
  - Deep vein thrombosis [Unknown]
  - Pancreatic neoplasm [Unknown]
  - Metastases to liver [Unknown]
  - Pseudomonas infection [Unknown]
  - Cerebrovascular accident [Unknown]
  - Adenocarcinoma [Unknown]
  - Ischaemic stroke [Unknown]
  - Endocarditis noninfective [Unknown]
  - Dysarthria [Unknown]
  - Paraesthesia [Unknown]
  - Language disorder [Unknown]
  - Motor dysfunction [Unknown]
  - Weight decreased [Unknown]
  - Aphasia [Unknown]
  - Facial paresis [Unknown]
